FAERS Safety Report 7056820-0 (Version None)
Quarter: 2010Q4

REPORT INFORMATION
  Report Type: 
  Country: None (occurrence: None)
  Receive Date: 20101022
  Receipt Date: 20100305
  Transmission Date: 20110411
  Serious: No
  Sender: FDA-Public Use
  Company Number: A0848679A

PATIENT
  Sex: Female

DRUGS (1)
  1. DUAC [Suspect]
     Indication: ACNE
     Route: 061

REACTIONS (2)
  - RASH [None]
  - SWELLING FACE [None]
